FAERS Safety Report 8468745-4 (Version None)
Quarter: 2012Q2

REPORT INFORMATION
  Report Type: 
  Country: None (occurrence: None)
  Receive Date: 20120626
  Receipt Date: 20120617
  Transmission Date: 20120825
  Serious: Yes (Other)
  Sender: FDA-Public Use
  Company Number: US-ABBOTT-12P-163-0947311-00

PATIENT
  Age: 44 Year
  Sex: Female

DRUGS (5)
  1. CALCIUM [Concomitant]
     Indication: PRODUCT USED FOR UNKNOWN INDICATION
  2. HUMIRA [Suspect]
     Indication: RHEUMATOID ARTHRITIS
     Dates: start: 20110601
  3. METHOTREXATE [Concomitant]
     Indication: PRODUCT USED FOR UNKNOWN INDICATION
  4. ZOLOFT [Concomitant]
     Indication: PRODUCT USED FOR UNKNOWN INDICATION
  5. FOLIC ACID [Concomitant]
     Indication: PRODUCT USED FOR UNKNOWN INDICATION

REACTIONS (10)
  - SKIN MASS [None]
  - COUGH [None]
  - RASH MACULAR [None]
  - BLOOD PRESSURE INCREASED [None]
  - UPPER RESPIRATORY TRACT CONGESTION [None]
  - INJECTION SITE PAIN [None]
  - NASAL CONGESTION [None]
  - RASH ERYTHEMATOUS [None]
  - BREAST CYST [None]
  - LUPUS-LIKE SYNDROME [None]
